FAERS Safety Report 6291275-5 (Version None)
Quarter: 2009Q3

REPORT INFORMATION
  Report Type: 
  Country: None (occurrence: None)
  Receive Date: 20090730
  Receipt Date: 20090723
  Transmission Date: 20100115
  Serious: Yes (Other)
  Sender: FDA-Public Use
  Company Number: US-JNJCH-2009020100

PATIENT
  Age: 78 Year
  Sex: Female
  Weight: 73.9 kg

DRUGS (3)
  1. BENGAY ULTRA STRENGTH [Suspect]
     Indication: PAIN IN EXTREMITY
     Dosage: TEXT:TEASPOON-SIZE ONCE
     Route: 061
     Dates: start: 20090721, end: 20090722
  2. VITAMINS NOS [Concomitant]
     Indication: DRUG USE FOR UNKNOWN INDICATION
     Dosage: TEXT:UNKNOWN
     Route: 065
  3. CALCIUM [Concomitant]
     Indication: DRUG USE FOR UNKNOWN INDICATION
     Dosage: TEXT:UNKNOWN
     Route: 065

REACTIONS (2)
  - APPLICATION SITE IRRITATION [None]
  - BLISTER [None]
